FAERS Safety Report 10031946 (Version 1)
Quarter: 2014Q1

REPORT INFORMATION
  Report Type: Spontaneous
  Country: US (occurrence: US)
  Receive Date: 20140324
  Receipt Date: 20140324
  Transmission Date: 20141002
  Serious: No
  Sender: FDA-Public Use
  Company Number: US-SHIRE-US201400729

PATIENT
  Age: 17 Year
  Sex: Male

DRUGS (1)
  1. VYVANSE [Suspect]
     Indication: PRODUCT USED FOR UNKNOWN INDICATION
     Dosage: 40 MG, UNKNOWN
     Route: 048
     Dates: start: 2014

REACTIONS (3)
  - Impulsive behaviour [Unknown]
  - Anger [Unknown]
  - Drug effect decreased [Unknown]
